FAERS Safety Report 14200610 (Version 1)
Quarter: 2017Q4

REPORT INFORMATION
  Report Type: Spontaneous
  Country: TR (occurrence: TR)
  Receive Date: 20171117
  Receipt Date: 20171117
  Transmission Date: 20180321
  Serious: Yes (Other)
  Sender: FDA-Public Use
  Company Number: TR-PFIZER INC-2017461921

PATIENT
  Age: 61 Year
  Sex: Male

DRUGS (4)
  1. RANTUDIL [Concomitant]
     Active Substance: ACEMETACIN
     Dosage: UNK UNK, 2X/DAY
  2. BENEDAY [Concomitant]
     Dosage: UNK UNK, 1X/DAY
  3. CABRAL /00078701/ [Concomitant]
     Dosage: UNK UNK, 2X/DAY
  4. NEURONTIN [Suspect]
     Active Substance: GABAPENTIN
     Dosage: 600 MG, 1X/DAY
     Route: 048

REACTIONS (2)
  - Haematuria [Recovered/Resolved]
  - Haematuria traumatic [Recovered/Resolved]

NARRATIVE: CASE EVENT DATE: 20171024
